FAERS Safety Report 9657104 (Version 2)
Quarter: 2013Q4

REPORT INFORMATION
  Report Type: Spontaneous
  Country: BR (occurrence: BR)
  Receive Date: 20131030
  Receipt Date: 20131205
  Transmission Date: 20140711
  Serious: Yes (Other)
  Sender: FDA-Public Use
  Company Number: BR-ALLERGAN-1316523US

PATIENT
  Age: 5 Month
  Sex: Male

DRUGS (2)
  1. ALPHAGAN P [Suspect]
     Indication: GLAUCOMA
     Dosage: UNK
     Route: 047
     Dates: start: 20131016, end: 20131017
  2. DIPYRONE [Concomitant]
     Dosage: UNK
     Dates: start: 20131017

REACTIONS (5)
  - Hypotonia [Recovered/Resolved]
  - Hypersomnia [Recovered/Resolved]
  - Apnoea [Recovered/Resolved]
  - Hypothermia [Recovered/Resolved]
  - Off label use [Unknown]
